FAERS Safety Report 5926076-8 (Version None)
Quarter: 2008Q4

REPORT INFORMATION
  Report Type: 
  Country: None (occurrence: None)
  Receive Date: 20081016
  Receipt Date: 20081001
  Transmission Date: 20090506
  Serious: Yes (Other)
  Sender: FDA-Public Use
  Company Number: 8037746

PATIENT
  Age: 10 Year
  Sex: Male

DRUGS (1)
  1. EQUASYM [Suspect]

REACTIONS (1)
  - TIC [None]
